FAERS Safety Report 6172214-4 (Version None)
Quarter: 2009Q2

REPORT INFORMATION
  Report Type: 
  Country: None (occurrence: None)
  Receive Date: 20090424
  Receipt Date: 20090116
  Transmission Date: 20091009
  Serious: No
  Sender: FDA-Public Use
  Company Number: ALL1-2009-00134

PATIENT
  Sex: Female

DRUGS (2)
  1. VYVANSE [Suspect]
     Dosage: 30 MG, ONE DOSE, ORAL
     Route: 048
     Dates: start: 20081101, end: 20081101
  2. VYVANSE [Suspect]
     Dosage: 30 MG, ONE DOSE, ORAL
     Route: 048
     Dates: start: 20090101, end: 20090101

REACTIONS (1)
  - DRUG DIVERSION [None]
